FAERS Safety Report 5497625-1 (Version None)
Quarter: 2007Q4

REPORT INFORMATION
  Report Type: 
  Country: None (occurrence: None)
  Receive Date: 20071025
  Receipt Date: 20061219
  Transmission Date: 20080405
  Serious: No
  Sender: FDA-Public Use
  Company Number: A0632120A

PATIENT
  Sex: Female

DRUGS (5)
  1. ADVAIR DISKUS 100/50 [Suspect]
     Indication: ASTHMA
     Dosage: 1PUFF TWICE PER DAY
     Route: 055
  2. ASTELIN [Concomitant]
  3. ALBUTEROL [Concomitant]
  4. FLEXERIL [Concomitant]
  5. XANAX [Concomitant]

REACTIONS (17)
  - AMNESIA [None]
  - BRONCHITIS [None]
  - COUGH [None]
  - DYSPHONIA [None]
  - EAR INFECTION [None]
  - EPISTAXIS [None]
  - HEADACHE [None]
  - HYPOAESTHESIA [None]
  - MYALGIA [None]
  - ORAL FUNGAL INFECTION [None]
  - PAIN IN EXTREMITY [None]
  - PHARYNGITIS [None]
  - PYREXIA [None]
  - RESPIRATORY TRACT INFECTION [None]
  - RHINITIS [None]
  - SENSATION OF HEAVINESS [None]
  - SINUSITIS [None]
